FAERS Safety Report 5963999-8 (Version None)
Quarter: 2008Q4

REPORT INFORMATION
  Report Type: 
  Country: None (occurrence: None)
  Receive Date: 20081124
  Receipt Date: 20081111
  Transmission Date: 20090506
  Serious: Yes (Other)
  Sender: FDA-Public Use
  Company Number: DE-ELI_LILLY_AND_COMPANY-DE200811003597

PATIENT
  Age: 67 Year
  Sex: Male

DRUGS (4)
  1. CYMBALTA [Suspect]
     Indication: DEPRESSION
     Dosage: 60 MG, UNKNOWN
     Route: 065
  2. MIRTAZAPINE [Concomitant]
     Indication: DEPRESSION
     Dosage: 30 MG, UNKNOWN
     Route: 065
  3. SIFROL [Concomitant]
     Indication: PARKINSON'S DISEASE
     Dosage: 0.35 MG, THREE TIMES
     Route: 048
  4. SELEGILINE HCL [Concomitant]
     Indication: PARKINSON'S DISEASE
     Dosage: 5 MG, UNKNOWN
     Route: 065

REACTIONS (2)
  - CATARACT [None]
  - GLAUCOMA [None]
